FAERS Safety Report 7546751-1 (Version None)
Quarter: 2011Q2

REPORT INFORMATION
  Report Type: 
  Country: None (occurrence: None)
  Receive Date: 20110614
  Receipt Date: 20110607
  Transmission Date: 20111010
  Serious: Yes (Disabling)
  Sender: FDA-Public Use
  Company Number: B0724650A

PATIENT
  Age: 33 Year
  Sex: Female

DRUGS (2)
  1. DIAZEPAM [Concomitant]
  2. PAROXETINE HCL [Suspect]
     Indication: ANXIETY DISORDER
     Route: 048
     Dates: start: 20020101

REACTIONS (6)
  - WITHDRAWAL SYNDROME [None]
  - HYPERHIDROSIS [None]
  - PALPITATIONS [None]
  - PAIN [None]
  - PERSONALITY CHANGE [None]
  - PANIC ATTACK [None]
